FAERS Safety Report 10208729 (Version 1)
Quarter: 2014Q2

REPORT INFORMATION
  Report Type: Spontaneous
  Country: SE (occurrence: SE)
  Receive Date: 20140530
  Receipt Date: 20140530
  Transmission Date: 20141212
  Serious: Yes (Hospitalization, Other)
  Sender: FDA-Public Use
  Company Number: SE-PFIZER INC-2014144897

PATIENT
  Age: 85 Year
  Sex: Female

DRUGS (4)
  1. DALACIN [Suspect]
     Indication: ERYSIPELAS
     Dosage: UNK
     Dates: start: 201404, end: 201405
  2. FURIX [Concomitant]
     Dosage: UNK
  3. SALURES [Concomitant]
     Dosage: UNK
  4. PREDNISOLONE [Concomitant]
     Dosage: UNK

REACTIONS (2)
  - Rash [Recovered/Resolved]
  - Atrial fibrillation [Unknown]
